FAERS Safety Report 25698379 (Version 1)
Quarter: 2025Q3

REPORT INFORMATION
  Report Type: Report from Study
  Country: US (occurrence: US)
  Receive Date: 20250819
  Receipt Date: 20250819
  Transmission Date: 20251021
  Serious: Yes (Other)
  Sender: ABBVIE
  Company Number: US-ABBVIE-5826047

PATIENT
  Age: 64 Year
  Sex: Male

DRUGS (5)
  1. HUMIRA [Suspect]
     Active Substance: ADALIMUMAB
     Indication: Psoriasis
     Route: 058
     Dates: start: 20220701
  2. HUMIRA [Suspect]
     Active Substance: ADALIMUMAB
     Dosage: MISSED TWO DOSES, CITRATE FREE, ?LAST ADMIN DATE: 2022, DOSE FORM: SOLUTION FOR INJECTION IN PRE-...
     Route: 058
     Dates: start: 20220707
  3. HUMIRA [Suspect]
     Active Substance: ADALIMUMAB
     Dosage: CITRATE FREE, DOSE FORM : SOLUTION FOR INJECTION IN PRE-FILLED PEN
     Route: 058
     Dates: start: 2022, end: 2022
  4. HUMIRA [Suspect]
     Active Substance: ADALIMUMAB
     Route: 058
     Dates: start: 20240706
  5. MELOXICAM [Concomitant]
     Active Substance: MELOXICAM
     Indication: Joint injury
     Dates: start: 20250514

REACTIONS (8)
  - Meniscus injury [Unknown]
  - Vision blurred [Unknown]
  - Eye pain [Unknown]
  - Eye irritation [Not Recovered/Not Resolved]
  - Drug ineffective [Recovering/Resolving]
  - Ocular hyperaemia [Not Recovered/Not Resolved]
  - Pain [Unknown]
  - Psoriasis [Not Recovered/Not Resolved]

NARRATIVE: CASE EVENT DATE: 20250501
